FAERS Safety Report 15346379 (Version 4)
Quarter: 2019Q3

REPORT INFORMATION
  Report Type: Report from Study
  Country: US (occurrence: US)
  Receive Date: 20180904
  Receipt Date: 20190812
  Transmission Date: 20191004
  Serious: Yes (Hospitalization)
  Sender: FDA-Public Use
  Company Number: US-ALKERMES INC.-ALK-2018-004427

PATIENT
  Age: 32 Year
  Sex: Female

DRUGS (13)
  1. BLINDED BUPROPION [Suspect]
     Active Substance: BUPROPION
     Indication: DRUG USE DISORDER
     Dosage: UNK UNK, Q3WK
     Route: 030
     Dates: start: 20180807
  2. BLINDED BUPROPION [Suspect]
     Active Substance: BUPROPION
     Dosage: UNK, QD
     Route: 048
     Dates: start: 20180807
  3. BIOTIN [Concomitant]
     Active Substance: BIOTIN
     Indication: PRODUCT USED FOR UNKNOWN INDICATION
  4. ONDANSETRON [Concomitant]
     Active Substance: ONDANSETRON
     Indication: PRODUCT USED FOR UNKNOWN INDICATION
     Dosage: UNK
  5. CEFTRIAXONE. [Concomitant]
     Active Substance: CEFTRIAXONE
     Indication: PYURIA
     Dosage: UNK
  6. BLINDED PLACEBO [Suspect]
     Active Substance: INVESTIGATIONAL PRODUCT
     Indication: DRUG USE DISORDER
     Dosage: UNK UNK, Q3WK
     Route: 030
     Dates: start: 20180807
  7. VIVITROL [Suspect]
     Active Substance: NALTREXONE
     Dosage: UNK, QD
     Route: 048
     Dates: start: 20180807
  8. VIVITROL [Suspect]
     Active Substance: NALTREXONE
     Indication: DRUG USE DISORDER
     Dosage: UNK UNK, Q3WK
     Route: 030
     Dates: start: 20180807
  9. MORPHINE [Concomitant]
     Active Substance: MORPHINE
     Indication: PRODUCT USED FOR UNKNOWN INDICATION
  10. SODIUM CHLORIDE. [Concomitant]
     Active Substance: SODIUM CHLORIDE
     Indication: PRODUCT USED FOR UNKNOWN INDICATION
  11. BUPROPION. [Concomitant]
     Active Substance: BUPROPION
     Indication: PRODUCT USED FOR UNKNOWN INDICATION
  12. CEFTRIAXONE. [Concomitant]
     Active Substance: CEFTRIAXONE
     Dosage: TREATMENT
     Dates: start: 201808, end: 201808
  13. BLINDED PLACEBO [Suspect]
     Active Substance: INVESTIGATIONAL PRODUCT
     Dosage: UNK, QD
     Route: 048
     Dates: start: 20180807

REACTIONS (1)
  - Pyuria [Recovered/Resolved]

NARRATIVE: CASE EVENT DATE: 20180817
